FAERS Safety Report 5289642-1 (Version None)
Quarter: 2007Q2

REPORT INFORMATION
  Report Type: 
  Country: None (occurrence: None)
  Receive Date: 20070406
  Receipt Date: 20070402
  Transmission Date: 20071010
  Serious: Yes (Life-Threatening, Hospitalization)
  Sender: FDA-Public Use
  Company Number: 2007AP00721

PATIENT
  Age: 19731 Day
  Sex: Male
  Weight: 69.6 kg

DRUGS (3)
  1. CRESTOR [Suspect]
     Indication: HYPERLIPIDAEMIA
     Route: 048
     Dates: start: 20070113, end: 20070125
  2. TICLOPIDINE HCL [Suspect]
     Indication: ARTERIOSCLEROSIS CORONARY ARTERY
     Route: 048
     Dates: start: 20061211, end: 20070125
  3. ASPIRIN [Concomitant]
     Indication: ARTERIOSCLEROSIS CORONARY ARTERY
     Route: 048
     Dates: start: 20061206, end: 20070125

REACTIONS (2)
  - AGRANULOCYTOSIS [None]
  - UPPER RESPIRATORY TRACT INFECTION [None]
